FAERS Safety Report 15728454 (Version 2)
Quarter: 2019Q1

REPORT INFORMATION
  Report Type: Spontaneous
  Country: US (occurrence: US)
  Receive Date: 20181217
  Receipt Date: 20190109
  Transmission Date: 20190417
  Serious: No
  Sender: FDA-Public Use
  Company Number: US-ASTRAZENECA-2018SF60440

PATIENT
  Age: 26542 Day
  Sex: Female
  Weight: 67.1 kg

DRUGS (4)
  1. BRILINTA [Suspect]
     Active Substance: TICAGRELOR
     Indication: MYOCARDIAL INFARCTION
     Dosage: 90.0MG UNKNOWN
     Route: 048
     Dates: start: 20181203
  2. BRILINTA [Suspect]
     Active Substance: TICAGRELOR
     Indication: STENT PLACEMENT
     Dosage: 90.0MG UNKNOWN
     Route: 048
     Dates: start: 20181203
  3. ASPIRIN. [Concomitant]
     Active Substance: ASPIRIN
     Dates: start: 20181203
  4. LOPRESSOR [Concomitant]
     Active Substance: METOPROLOL TARTRATE
     Dates: start: 20181203

REACTIONS (6)
  - Chest pain [Unknown]
  - Dyspnoea [Not Recovered/Not Resolved]
  - Chest discomfort [Unknown]
  - Oral herpes [Unknown]
  - Pain [Unknown]
  - Palpitations [Unknown]

NARRATIVE: CASE EVENT DATE: 20181204
